FAERS Safety Report 4856043-7 (Version None)
Quarter: 2005Q4

REPORT INFORMATION
  Report Type: 
  Country: None (occurrence: None)
  Receive Date: 20051216
  Receipt Date: 20051203
  Transmission Date: 20060501
  Serious: Yes (Hospitalization)
  Sender: FDA-Public Use
  Company Number: US-JNJFOC-20051203153

PATIENT
  Sex: Male
  Weight: 79.83 kg

DRUGS (13)
  1. IBUPROFEN [Suspect]
     Route: 048
  2. VIAGRA [Concomitant]
     Indication: ERECTILE DYSFUNCTION
     Route: 048
  3. GLUCOPHAGE [Concomitant]
     Route: 048
  4. LOW DOSE ASPIRIN [Concomitant]
     Route: 048
  5. ZOCOR [Concomitant]
     Route: 048
  6. PLAVIX [Concomitant]
     Route: 048
  7. METOPROLOL [Concomitant]
     Route: 048
  8. ASCOL [Concomitant]
     Route: 048
  9. TOPROL-XL [Concomitant]
     Route: 048
  10. ALTACE [Concomitant]
     Route: 048
  11. PROSCAR [Concomitant]
     Route: 048
  12. PROTONIX [Concomitant]
     Route: 048
  13. ANTIBIOTIC [Concomitant]

REACTIONS (5)
  - CONSTIPATION [None]
  - GASTRIC INFECTION [None]
  - PROSTATE EXAMINATION ABNORMAL [None]
  - PROSTATIC MASS [None]
  - PROSTATIC PAIN [None]
